FAERS Safety Report 9025997 (Version 1)
Quarter: 2012Q4

REPORT INFORMATION
  Report Type: Spontaneous
  Country: US (occurrence: None)
  Receive Date: 20121217
  Receipt Date: 20121217
  Transmission Date: 20130627
  Serious: Yes (Other)
  Sender: FDA-Public Use
  Company Number: None

PATIENT
  Age: 57 Year
  Sex: Female
  Weight: 117.94 kg

DRUGS (3)
  1. DELADUMONE [Suspect]
     Indication: LACTATION INHIBITION THERAPY
     Dates: start: 197311
  2. DELADUMONE [Suspect]
     Dates: start: 197311
  3. PARLODEL [Suspect]
     Indication: LACTATION INHIBITION THERAPY

REACTIONS (3)
  - Depression [None]
  - Convulsion [None]
  - Neoplasm malignant [None]
